FAERS Safety Report 6537563-6 (Version None)
Quarter: 2010Q1

REPORT INFORMATION
  Report Type: 
  Country: None (occurrence: None)
  Receive Date: 20100114
  Receipt Date: 20100107
  Transmission Date: 20100710
  Serious: Yes (Hospitalization)
  Sender: FDA-Public Use
  Company Number: US-ALEXION-A200901120

PATIENT

DRUGS (15)
  1. SOLIRIS [Suspect]
     Indication: PAROXYSMAL NOCTURNAL HAEMOGLOBINURIA
     Dosage: 600 MG, UNK
     Route: 042
     Dates: start: 20090521, end: 20090617
  2. SOLIRIS [Suspect]
     Dosage: 900 MG, UNK
     Route: 042
     Dates: start: 20090625
  3. PROTONIX                           /01263201/ [Concomitant]
     Dosage: 40 MG, QD
  4. OXYCONTIN [Concomitant]
     Dosage: 80 MG, BID
  5. SPIRONOLACTONE [Concomitant]
     Dosage: 50 MG, QD
  6. PROPRANOLOL [Concomitant]
     Dosage: 10 MG, Q12H
  7. LOVENOX [Concomitant]
     Dosage: 0.7
  8. PHENERGAN HCL [Concomitant]
     Indication: NAUSEA
     Dosage: 25 MG, Q6H PRN
  9. FERROUS SULFATE TAB [Concomitant]
     Dosage: 150 MG, QD
  10. FOLIC ACID [Concomitant]
     Dosage: 1 MG, QD
  11. DULCOLAX                           /00064401/ [Concomitant]
  12. OXYCODONE [Concomitant]
     Dosage: 5 MG, UNK
  13. DURAGESIC-100 [Concomitant]
     Dosage: 25 UG, Q72H
     Route: 061
  14. STOOL SOFTENER [Concomitant]
     Dosage: 2
  15. AMBIEN [Concomitant]
     Dosage: 10 MG, QHS

REACTIONS (6)
  - FATIGUE [None]
  - HAEMATOCRIT DECREASED [None]
  - HAEMOGLOBIN DECREASED [None]
  - HAEMORRHAGE [None]
  - JAUNDICE [None]
  - RED BLOOD CELL COUNT DECREASED [None]
